FAERS Safety Report 14290509 (Version 1)
Quarter: 2017Q4

REPORT INFORMATION
  Report Type: Spontaneous
  Country: US (occurrence: US)
  Receive Date: 20171215
  Receipt Date: 20171215
  Transmission Date: 20180321
  Serious: No
  Sender: FDA-Public Use
  Company Number: US-ENDO PHARMACEUTICALS INC-2017-002878

PATIENT
  Age: 77 Year
  Sex: Male
  Weight: 102.4 kg

DRUGS (1)
  1. TESTIM [Suspect]
     Active Substance: TESTOSTERONE
     Indication: BLOOD TESTOSTERONE DECREASED
     Dosage: 50 MG, APPLY 1 TUBE ON SHOULDERS, UNKNOWN
     Route: 062
     Dates: start: 201705, end: 201705

REACTIONS (3)
  - Product quality issue [Recovered/Resolved]
  - Sticky skin [Unknown]
  - Product odour abnormal [Recovered/Resolved]

NARRATIVE: CASE EVENT DATE: 201705
